FAERS Safety Report 5449496-7 (Version None)
Quarter: 2007Q3

REPORT INFORMATION
  Report Type: 
  Country: None (occurrence: None)
  Receive Date: 20070907
  Receipt Date: 20070823
  Transmission Date: 20080115
  Serious: Yes (Death)
  Sender: FDA-Public Use
  Company Number: 2007RR-09560

PATIENT
  Age: 16 Month

DRUGS (1)
  1. IBUPROFEN [Suspect]
     Dosage: 469 MG/KG

REACTIONS (5)
  - APNOEA [None]
  - ASPIRATION [None]
  - OVERDOSE [None]
  - PNEUMONITIS [None]
  - SEPSIS [None]
